FAERS Safety Report 20409933 (Version 1)
Quarter: 2022Q1

REPORT INFORMATION
  Report Type: Spontaneous
  Country: US (occurrence: US)
  Receive Date: 20220201
  Receipt Date: 20220201
  Transmission Date: 20220423
  Serious: No
  Sender: FDA-Public Use
  Company Number: US-SA-SAC20220125001071

PATIENT
  Sex: Female
  Weight: 26 kg

DRUGS (4)
  1. ALDURAZYME [Suspect]
     Active Substance: LARONIDASE
     Indication: Mucopolysaccharidosis
     Dosage: 6.8 MG, QW
     Route: 042
     Dates: start: 20220107
  2. LEVOTHYROXINE SODIUM [Concomitant]
     Active Substance: LEVOTHYROXINE SODIUM
  3. VITAMINS NOS [Concomitant]
     Active Substance: VITAMINS
  4. RISPERIDONE [Concomitant]
     Active Substance: RISPERIDONE

REACTIONS (7)
  - Cough [Unknown]
  - Productive cough [Unknown]
  - Irritability [Unknown]
  - Hyperhidrosis [Recovered/Resolved]
  - Nasopharyngitis [Unknown]
  - Feeling hot [Recovered/Resolved]
  - Chills [Recovered/Resolved]
